FAERS Safety Report 9322953 (Version 3)
Quarter: 2013Q3

REPORT INFORMATION
  Report Type: Spontaneous
  Country: GB (occurrence: GB)
  Receive Date: 20130603
  Receipt Date: 20130722
  Transmission Date: 20140515
  Serious: Yes (Other)
  Sender: FDA-Public Use
  Company Number: GB-ROCHE-1231252

PATIENT
  Age: 56 Year
  Sex: Male
  Weight: 84 kg

DRUGS (6)
  1. PEGASYS [Suspect]
     Indication: HEPATITIS C
     Route: 058
     Dates: start: 20130415
  2. PEGASYS [Suspect]
     Route: 058
     Dates: start: 20130326
  3. COPEGUS [Suspect]
     Indication: HEPATITIS C
     Route: 048
     Dates: start: 20130415
  4. COPEGUS [Suspect]
     Route: 048
     Dates: start: 20130326
  5. TELAPREVIR [Suspect]
     Indication: HEPATITIS C
     Route: 048
     Dates: start: 20130415
  6. TELAPREVIR [Suspect]
     Route: 048
     Dates: start: 20130326

REACTIONS (2)
  - Haematospermia [Unknown]
  - Abdominal pain [Unknown]
